FAERS Safety Report 23848389 (Version 1)
Quarter: 2024Q2

REPORT INFORMATION
  Report Type: Spontaneous
  Country: CN (occurrence: CN)
  Receive Date: 20240513
  Receipt Date: 20240513
  Transmission Date: 20240715
  Serious: Yes (Hospitalization, Other)
  Sender: FDA-Public Use
  Company Number: CN-PFIZER INC-PV202400060777

PATIENT
  Age: 52 Year
  Sex: Female
  Weight: 70 kg

DRUGS (2)
  1. METHOTREXATE SODIUM [Suspect]
     Active Substance: METHOTREXATE SODIUM
     Indication: Chemotherapy
     Dosage: 5.9 G, 1X/DAY
     Route: 041
     Dates: start: 20231214, end: 20231214
  2. IFOSFAMIDE [Concomitant]
     Active Substance: IFOSFAMIDE
     Indication: Chemotherapy
     Dosage: 2.5 G, 1X/DAY
     Route: 041
     Dates: start: 20231215, end: 20231215

REACTIONS (4)
  - Renal impairment [Recovered/Resolved]
  - Gastrointestinal haemorrhage [Recovered/Resolved]
  - Myelosuppression [Recovering/Resolving]
  - Gastrointestinal injury [Recovered/Resolved]

NARRATIVE: CASE EVENT DATE: 20231215
